FAERS Safety Report 5505302-3 (Version None)
Quarter: 2007Q4

REPORT INFORMATION
  Report Type: 
  Country: None (occurrence: None)
  Receive Date: 20071102
  Receipt Date: 20071029
  Transmission Date: 20080405
  Serious: Yes (Death)
  Sender: FDA-Public Use
  Company Number: A0690325A

PATIENT
  Age: 68 Year
  Sex: Male

DRUGS (2)
  1. FLONASE [Suspect]
     Indication: MULTIPLE ALLERGIES
     Route: 045
  2. LIPITOR [Concomitant]

REACTIONS (4)
  - COLON CANCER [None]
  - EPISTAXIS [None]
  - MYOCARDIAL INFARCTION [None]
  - NASAL ULCER [None]
